FAERS Safety Report 5086356-8 (Version None)
Quarter: 2006Q3

REPORT INFORMATION
  Report Type: 
  Country: None (occurrence: None)
  Receive Date: 20060823
  Receipt Date: 20060621
  Transmission Date: 20061208
  Serious: Yes (Hospitalization)
  Sender: FDA-Public Use
  Company Number: US-BRISTOL-MYERS SQUIBB COMPANY-13418819

PATIENT
  Age: 58 Year
  Sex: Female

DRUGS (14)
  1. ORENCIA [Suspect]
     Indication: RHEUMATOID ARTHRITIS
     Route: 042
     Dates: start: 20060301, end: 20060426
  2. PREDNISONE [Concomitant]
     Indication: RHEUMATOID ARTHRITIS
     Route: 048
     Dates: start: 20060131
  3. METHOTREXATE [Concomitant]
     Indication: RHEUMATOID ARTHRITIS
     Route: 048
     Dates: start: 20051208
  4. ANTIVERT [Concomitant]
     Dates: start: 20060329
  5. LEVOXYL [Concomitant]
     Dates: start: 19970101
  6. HYDROCHLOROTHIAZIDE [Concomitant]
     Dates: start: 20060311
  7. AVANDIA [Concomitant]
     Dates: start: 20000101
  8. TYLENOL [Concomitant]
     Dates: start: 20000801
  9. FOLIC ACID [Concomitant]
     Dates: start: 20001016
  10. ETODOLAC [Concomitant]
     Dates: start: 20060118
  11. UNIVASC [Concomitant]
     Dates: start: 20060201
  12. HYDROCODONE BITARTRATE [Concomitant]
     Dosage: DOSAGE FORM = TABLET
     Dates: start: 20000601
  13. FUROSEMIDE [Concomitant]
     Dates: start: 20051101
  14. EFFEXOR [Concomitant]
     Dates: start: 20050601

REACTIONS (4)
  - HEART RATE DECREASED [None]
  - HYPOTENSION [None]
  - RENAL FAILURE ACUTE [None]
  - SHOCK [None]
